FAERS Safety Report 24668305 (Version 1)
Quarter: 2024Q4

REPORT INFORMATION
  Report Type: Spontaneous
  Country: US (occurrence: US)
  Receive Date: 20241127
  Receipt Date: 20241127
  Transmission Date: 20250114
  Serious: No
  Sender: PHARMACOSMOS A/S
  Company Number: US-NEBO-673598

PATIENT
  Sex: Female

DRUGS (2)
  1. MONOFERRIC [Suspect]
     Active Substance: FERRIC DERISOMALTOSE
     Indication: Product used for unknown indication
  2. MONOFERRIC [Suspect]
     Active Substance: FERRIC DERISOMALTOSE
     Indication: Product used for unknown indication

REACTIONS (9)
  - Fatigue [Unknown]
  - Dizziness [Unknown]
  - Anxiety [Unknown]
  - Skin discolouration [Unknown]
  - Tinnitus [Unknown]
  - Rash [Unknown]
  - Malaise [Unknown]
  - Skin reaction [Unknown]
  - Pruritus [Unknown]
